FAERS Safety Report 9225875 (Version 1)
Quarter: 2013Q2

REPORT INFORMATION
  Report Type: Spontaneous
  Country: US (occurrence: US)
  Receive Date: 20130411
  Receipt Date: 20130411
  Transmission Date: 20140414
  Serious: No
  Sender: FDA-Public Use
  Company Number: US-ASTELLAS-2012US003367

PATIENT
  Age: 86 Year
  Sex: Male

DRUGS (1)
  1. PROTOPIC [Suspect]
     Indication: PERIORBITAL OEDEMA
     Dosage: 0.1 %, BID
     Route: 061
     Dates: start: 20120206

REACTIONS (1)
  - Off label use [Unknown]
